FAERS Safety Report 4263623-9 (Version None)
Quarter: 2004Q1

REPORT INFORMATION
  Report Type: 
  Country: None (occurrence: None)
  Receive Date: 20040102
  Receipt Date: 20031224
  Transmission Date: 20041129
  Serious: Yes (Hospitalization)
  Sender: FDA-Public Use
  Company Number: HQWYE915929DEC03

PATIENT
  Age: 30 Year
  Sex: Female

DRUGS (1)
  1. ADVIL [Suspect]
     Indication: INFLUENZA
     Dosage: 1200 MG DAILY ORAL
     Route: 048
     Dates: start: 20031101, end: 20031201

REACTIONS (1)
  - HEPATOCELLULAR DAMAGE [None]
